FAERS Safety Report 7160517-6 (Version None)
Quarter: 2010Q4

REPORT INFORMATION
  Report Type: 
  Country: None (occurrence: None)
  Receive Date: 20101214
  Receipt Date: 20101202
  Transmission Date: 20110411
  Serious: Yes (Other)
  Sender: FDA-Public Use
  Company Number: US-PFIZER INC-2010171506

PATIENT
  Sex: Female

DRUGS (2)
  1. IBUPROFEN [Suspect]
     Dosage: UNK
     Dates: start: 20091001
  2. TAMOXIFEN CITRATE [Suspect]
     Dosage: UNK
     Dates: start: 20091001

REACTIONS (2)
  - DESMOID TUMOUR [None]
  - HYDRONEPHROSIS [None]
